FAERS Safety Report 6618398-2 (Version None)
Quarter: 2010Q1

REPORT INFORMATION
  Report Type: 
  Country: None (occurrence: None)
  Receive Date: 20100308
  Receipt Date: 20100301
  Transmission Date: 20100710
  Serious: Yes (Hospitalization)
  Sender: FDA-Public Use
  Company Number: B0630135A

PATIENT
  Sex: Female

DRUGS (4)
  1. CLAVULIN [Suspect]
     Indication: DRUG USE FOR UNKNOWN INDICATION
     Dosage: 2G PER DAY
     Route: 048
     Dates: start: 20091222, end: 20091222
  2. BENTELAN [Concomitant]
     Route: 065
  3. TRIMETON [Concomitant]
     Route: 065
  4. MEPRAL [Concomitant]
     Route: 065

REACTIONS (2)
  - THROAT TIGHTNESS [None]
  - URTICARIA [None]
